FAERS Safety Report 9911599 (Version 3)
Quarter: 2014Q1

REPORT INFORMATION
  Report Type: Spontaneous
  Country: US (occurrence: US)
  Receive Date: 20140219
  Receipt Date: 20140304
  Transmission Date: 20141002
  Serious: Yes (Life-Threatening)
  Sender: FDA-Public Use
  Company Number: CHPA2013US006560

PATIENT
  Age: 83 Year
  Sex: Female

DRUGS (7)
  1. EXCEDRIN TENSION HEADACHE [Suspect]
     Indication: OSTEOPOROSIS
     Dosage: 0.5 DF, UNK
     Route: 048
  2. EXCEDRIN TENSION HEADACHE [Suspect]
     Indication: BACK PAIN
  3. EXCEDRIN TENSION HEADACHE [Suspect]
     Indication: OFF LABEL USE
  4. ACETYLSALICYLIC ACID [Suspect]
  5. IBUPROFEN [Suspect]
  6. TYLENOL [Concomitant]
     Indication: HEADACHE
  7. TYLENOL [Concomitant]
     Indication: ARTHRITIS

REACTIONS (4)
  - Feeling abnormal [Recovered/Resolved]
  - Gastric disorder [Recovered/Resolved]
  - Wrong technique in drug usage process [Unknown]
  - Underdose [Unknown]
